FAERS Safety Report 14229107 (Version 1)
Quarter: 2017Q4

REPORT INFORMATION
  Report Type: Spontaneous
  Country: US (occurrence: None)
  Receive Date: 20171122
  Receipt Date: 20171122
  Transmission Date: 20180321
  Serious: Yes (Hospitalization)
  Sender: FDA-Public Use
  Company Number: None

PATIENT
  Age: 51 Year
  Sex: Male

DRUGS (2)
  1. WARFARIN [Suspect]
     Active Substance: WARFARIN
     Indication: SURGERY
     Dosage: MG EVERY DAY PO
     Route: 048
  2. WARFARIN [Suspect]
     Active Substance: WARFARIN
     Indication: CARDIOVASCULAR DISORDER
     Dosage: MG EVERY DAY PO
     Route: 048

REACTIONS (12)
  - Malaise [None]
  - Haemorrhagic arteriovenous malformation [None]
  - Haemoglobin decreased [None]
  - Tachycardia [None]
  - Gastric mucosa erythema [None]
  - Dyspnoea exertional [None]
  - Polyp [None]
  - Dizziness exertional [None]
  - Gastric haemorrhage [None]
  - Anxiety [None]
  - Feeling cold [None]
  - Haematocrit decreased [None]

NARRATIVE: CASE EVENT DATE: 20171102
